FAERS Safety Report 9461918 (Version 1)
Quarter: 2013Q3

REPORT INFORMATION
  Report Type: Spontaneous
  Country: GB (occurrence: GB)
  Receive Date: 20130816
  Receipt Date: 20130816
  Transmission Date: 20140515
  Serious: Yes (Disabling, Other)
  Sender: FDA-Public Use
  Company Number: GB-MERCK-1308GBR004603

PATIENT
  Age: 42 Year
  Sex: Male
  Weight: 80 kg

DRUGS (2)
  1. SUBOXONE [Suspect]
     Dosage: 12 MG, UNK
     Route: 060
     Dates: start: 20130201, end: 20130729
  2. ZISPIN SOLTAB [Interacting]
     Indication: DEPRESSION
     Dosage: 30 MG, UNK
     Route: 048
     Dates: start: 20070201

REACTIONS (4)
  - Anxiety [Recovering/Resolving]
  - Palpitations [Recovering/Resolving]
  - Serotonin syndrome [Unknown]
  - Drug interaction [Unknown]
